FAERS Safety Report 9316285 (Version 1)
Quarter: 2013Q2

REPORT INFORMATION
  Report Type: Spontaneous
  Country: FR (occurrence: None)
  Receive Date: 20130522
  Receipt Date: 20130522
  Transmission Date: 20140414
  Serious: Yes (Hospitalization)
  Sender: FDA-Public Use
  Company Number: 2013-001555

PATIENT
  Age: 79 Year
  Sex: Female

DRUGS (5)
  1. ACTONEL [Suspect]
     Route: 048
  2. ENBREL [Suspect]
     Indication: RHEUMATOID ARTHRITIS
     Dates: start: 20040528, end: 20110323
  3. METHOTREXATE (METHOTREXATE) [Suspect]
     Indication: RHEUMATOID ARTHRITIS
     Dates: start: 19971216, end: 201102
  4. SPECIAFOLDINE (FOLIC ACID) [Suspect]
     Indication: RHEUMATOID ARTHRITIS
     Dates: end: 201102
  5. CORTANCYL [Suspect]

REACTIONS (1)
  - Cholangiocarcinoma [None]
